FAERS Safety Report 8021199 (Version 3)
Quarter: 2012Q4

REPORT INFORMATION
  Report Type: 
  Country: US (occurrence: US)
  Receive Date: 20110705
  Receipt Date: 20121210
  Transmission Date: 20130627
  Serious: Yes (Hospitalization, Other)
  Sender: FDA-Public Use
  Company Number: US-ROCHE-786639

PATIENT
  Sex: Female
  Weight: 54.4 kg

DRUGS (1)
  1. ACCUTANE [Suspect]
     Indication: ACNE
     Dosage: IN EARLY 1990S. RECEIVED DRUG
     Route: 065

REACTIONS (5)
  - Colitis ulcerative [Unknown]
  - Emotional distress [Unknown]
  - Injury [Unknown]
  - Depression [Unknown]
  - Inflammatory bowel disease [Unknown]
